FAERS Safety Report 6480724-5 (Version None)
Quarter: 2009Q4

REPORT INFORMATION
  Report Type: 
  Country: None (occurrence: None)
  Receive Date: 20091208
  Receipt Date: 20091129
  Transmission Date: 20100525
  Serious: No
  Sender: FDA-Public Use
  Company Number: US-B.I. PHARMACEUTICALS,INC./RIDGEFIELD-2009-BP-13820BP

PATIENT
  Age: 25 Year
  Sex: Male

DRUGS (2)
  1. ZANTAC 75 [Suspect]
     Indication: DYSPEPSIA
     Route: 048
     Dates: start: 20090901
  2. VENTOLIN [Concomitant]
     Indication: ASTHMA EXERCISE INDUCED

REACTIONS (2)
  - ERUCTATION [None]
  - FLATULENCE [None]
